FAERS Safety Report 8133783-8 (Version None)
Quarter: 2012Q1

REPORT INFORMATION
  Report Type: 
  Country: None (occurrence: None)
  Receive Date: 20120213
  Receipt Date: 20120213
  Transmission Date: 20120608
  Serious: Yes (Other)
  Sender: FDA-Public Use
  Company Number: None

PATIENT
  Age: 85 Year
  Sex: Female
  Weight: 68.038 kg

DRUGS (5)
  1. ESTRACE [Suspect]
     Indication: PROPHYLAXIS URINARY TRACT INFECTION
     Dosage: APPLY 1 FIGER TIPFULL
     Route: 061
     Dates: start: 20120114, end: 20120128
  2. COUMADIN [Concomitant]
  3. RAMIPRIL [Concomitant]
  4. ZOCOR [Concomitant]
  5. ZETIA [Concomitant]

REACTIONS (1)
  - URINARY TRACT INFECTION [None]
